FAERS Safety Report 22074621 (Version 1)
Quarter: 2023Q1

REPORT INFORMATION
  Report Type: Spontaneous
  Country: US (occurrence: None)
  Receive Date: 20230308
  Receipt Date: 20230308
  Transmission Date: 20230418
  Serious: No
  Sender: FDA-Public Use
  Company Number: None

PATIENT

DRUGS (2)
  1. SODIUM CHLORIDE [Suspect]
     Active Substance: SODIUM CHLORIDE
  2. STERILE WATER FOR INJECTION [Suspect]
     Active Substance: WATER

REACTIONS (5)
  - Intercepted product selection error [None]
  - Wrong product stored [None]
  - Product packaging confusion [None]
  - Circumstance or information capable of leading to medication error [None]
  - Product preparation error [None]
